FAERS Safety Report 15222135 (Version 1)
Quarter: 2018Q3

REPORT INFORMATION
  Report Type: Spontaneous
  Country: GB (occurrence: GB)
  Receive Date: 20180731
  Receipt Date: 20180731
  Transmission Date: 20181010
  Serious: Yes (Other)
  Sender: FDA-Public Use
  Company Number: GB-BAUSCH-BL-2018-020486

PATIENT
  Age: 85 Year
  Sex: Female
  Weight: 82.55 kg

DRUGS (6)
  1. CEFALEXIN [Concomitant]
     Active Substance: CEPHALEXIN
     Indication: PRODUCT USED FOR UNKNOWN INDICATION
  2. LANSOPRAZOLE. [Concomitant]
     Active Substance: LANSOPRAZOLE
     Indication: PRODUCT USED FOR UNKNOWN INDICATION
  3. BISOPROLOL FUMARATE. [Concomitant]
     Active Substance: BISOPROLOL FUMARATE
     Indication: PRODUCT USED FOR UNKNOWN INDICATION
  4. LEVOTHYROXINE SODIUM. [Concomitant]
     Active Substance: LEVOTHYROXINE SODIUM
     Indication: PRODUCT USED FOR UNKNOWN INDICATION
  5. INSULIN PORCINE [Concomitant]
     Active Substance: INSULIN PORK\INSULIN PURIFIED PORK
     Indication: PRODUCT USED FOR UNKNOWN INDICATION
  6. MOVIPREP [Suspect]
     Active Substance: ASCORBIC ACID\POLYETHYLENE GLYCOL 3350\POTASSIUM CHLORIDE\SODIUM ASCORBATE\SODIUM CHLORIDE\SODIUM SULFATE
     Indication: COLONOSCOPY
     Dosage: DILUTED 2 LITRES
     Route: 048
     Dates: start: 20180216, end: 20180217

REACTIONS (12)
  - Oesophageal oedema [Recovered/Resolved with Sequelae]
  - Dyspnoea [Recovering/Resolving]
  - Blood pressure systolic decreased [Recovered/Resolved with Sequelae]
  - Urinary tract infection [Recovering/Resolving]
  - Pain [Unknown]
  - Oedema mucosal [Recovered/Resolved with Sequelae]
  - Malaise [Unknown]
  - Palpitations [Recovered/Resolved with Sequelae]
  - Mouth swelling [Recovered/Resolved with Sequelae]
  - Nasal oedema [Recovered/Resolved with Sequelae]
  - Gastrointestinal tract irritation [Recovering/Resolving]
  - Lower respiratory tract infection [Recovering/Resolving]

NARRATIVE: CASE EVENT DATE: 20180218
